FAERS Safety Report 16099564 (Version 6)
Quarter: 2019Q4

REPORT INFORMATION
  Report Type: Spontaneous
  Country: BR (occurrence: BR)
  Receive Date: 20190321
  Receipt Date: 20191017
  Transmission Date: 20200122
  Serious: Yes (Hospitalization, Other)
  Sender: FDA-Public Use
  Company Number: BR-GLAXOSMITHKLINE-BR2018GSK233161

PATIENT
  Sex: Female
  Weight: 50 kg

DRUGS (3)
  1. NUCALA [Suspect]
     Active Substance: MEPOLIZUMAB
     Indication: ASTHMA
     Dosage: 100 MG, UNK
     Dates: start: 20181126
  2. BEROTEC [Concomitant]
     Active Substance: FENOTEROL HYDROBROMIDE
     Indication: PRODUCT USED FOR UNKNOWN INDICATION
     Dosage: UNK
  3. PULMICORT TURBUHALER [Concomitant]
     Active Substance: BUDESONIDE
     Indication: SINUSITIS
     Dosage: UNK

REACTIONS (18)
  - Middle insomnia [Unknown]
  - Hospitalisation [Unknown]
  - Spirometry abnormal [Unknown]
  - Condition aggravated [Unknown]
  - Malaise [Recovered/Resolved]
  - Cough [Not Recovered/Not Resolved]
  - Dyspnoea [Not Recovered/Not Resolved]
  - Product dose omission [Unknown]
  - Loss of personal independence in daily activities [Unknown]
  - Sinusitis [Unknown]
  - Unevaluable event [Unknown]
  - Gait disturbance [Unknown]
  - Product use issue [Unknown]
  - Hypersensitivity [Unknown]
  - Drug ineffective [Unknown]
  - Asthma [Not Recovered/Not Resolved]
  - Fatigue [Unknown]
  - Dysphonia [Unknown]
